FAERS Safety Report 7141775-0 (Version None)
Quarter: 2010Q4

REPORT INFORMATION
  Report Type: 
  Country: None (occurrence: None)
  Receive Date: 20101207
  Receipt Date: 20101126
  Transmission Date: 20110411
  Serious: Yes (Other)
  Sender: FDA-Public Use
  Company Number: FR-JNJFOC-20101200543

PATIENT
  Age: 62 Year
  Sex: Male

DRUGS (3)
  1. REMICADE [Suspect]
     Indication: RHEUMATOID ARTHRITIS
     Route: 042
  2. REMICADE [Suspect]
     Route: 042
  3. CORTICOSTEROIDS (NOS) [Concomitant]

REACTIONS (3)
  - INFECTION [None]
  - LUNG NEOPLASM [None]
  - MALIGNANT MELANOMA [None]
